FAERS Safety Report 9931848 (Version 2)
Quarter: 2014Q1

REPORT INFORMATION
  Report Type: Report from Study
  Country: GT (occurrence: GT)
  Receive Date: 20140228
  Receipt Date: 20140320
  Transmission Date: 20141002
  Serious: Yes (Other)
  Sender: FDA-Public Use
  Company Number: GT-BAYER-2014-028556

PATIENT
  Age: 73 Year
  Sex: Male

DRUGS (1)
  1. NEXAVAR [Suspect]
     Indication: HEPATIC CANCER
     Dosage: TOTAL DAILY DOSE 800 MG
     Route: 048
     Dates: start: 20131224

REACTIONS (6)
  - Loose tooth [None]
  - Tooth loss [None]
  - Dry skin [Not Recovered/Not Resolved]
  - Aphthous stomatitis [Recovering/Resolving]
  - Oral pain [None]
  - Weight decreased [None]
